FAERS Safety Report 7539725-8 (Version None)
Quarter: 2011Q2

REPORT INFORMATION
  Report Type: 
  Country: None (occurrence: None)
  Receive Date: 20110610
  Receipt Date: 20010405
  Transmission Date: 20111010
  Serious: Yes (Death, Other)
  Sender: FDA-Public Use
  Company Number: PHHO2000CA03285

PATIENT
  Sex: Male
  Weight: 48 kg

DRUGS (9)
  1. PROPULSID [Concomitant]
     Dosage: 10 MG, DAILY
     Route: 048
     Dates: start: 20000511
  2. TYLENOL-500 [Concomitant]
     Dosage: 650 MG, DAILY
     Route: 054
     Dates: start: 20000511, end: 20000514
  3. ATROVENT [Concomitant]
     Dates: start: 20000511, end: 20000514
  4. VENTOLIN HFA [Concomitant]
     Dates: start: 20000511, end: 20000514
  5. DILANTIN [Concomitant]
     Dosage: 100 MG, DAILY
     Route: 048
     Dates: start: 20000522
  6. PRILOSEC [Concomitant]
     Dosage: 40 MG, DAILY
     Route: 048
     Dates: start: 20000511
  7. CLOZAPINE [Suspect]
     Dosage: 200 MG, DAILY
     Route: 048
     Dates: start: 19991215
  8. COLACE [Concomitant]
     Dosage: 200 MG, DAILY
     Route: 048
     Dates: start: 20000511
  9. HALDOL [Concomitant]
     Dosage: 5 MG, DAILY
     Route: 048
     Dates: start: 20000526

REACTIONS (7)
  - LOSS OF CONSCIOUSNESS [None]
  - CONFUSIONAL STATE [None]
  - AGITATION [None]
  - CARDIO-RESPIRATORY ARREST [None]
  - INCREASED BRONCHIAL SECRETION [None]
  - CONVULSION [None]
  - DYSPNOEA [None]
